FAERS Safety Report 24732021 (Version 1)
Quarter: 2024Q4

REPORT INFORMATION
  Report Type: Spontaneous
  Country: US (occurrence: None)
  Receive Date: 20241213
  Receipt Date: 20241213
  Transmission Date: 20250115
  Serious: Yes (Hospitalization)
  Sender: Public
  Company Number: None

PATIENT
  Sex: Female

DRUGS (11)
  1. PROLIA [Suspect]
     Active Substance: DENOSUMAB
     Dosage: OTHER FREQUENCY : EVERY6MONTHS;?
     Route: 058
     Dates: start: 20191016
  2. ASPIRIN [Concomitant]
     Active Substance: ASPIRIN
  3. ASPIRIN LOW TAB 81 MG EC [Concomitant]
  4. CALCIUM TAB 280MG [Concomitant]
  5. GARB/LEVO TAB 25-100MG [Concomitant]
  6. CITRACAUVITAMIN D [Concomitant]
  7. CLOTRIMAZOLE CRE 1% [Concomitant]
  8. CRANBERRY TAB 450MG [Concomitant]
  9. DEXILANT CAP 30MG DR [Concomitant]
  10. DONEPEZIL [Concomitant]
     Active Substance: DONEPEZIL
  11. ESCITALOPRAM [Concomitant]
     Active Substance: ESCITALOPRAM OXALATE

REACTIONS (1)
  - COVID-19 [None]
